FAERS Safety Report 4757793-3 (Version None)
Quarter: 2005Q3

REPORT INFORMATION
  Report Type: 
  Country: None (occurrence: None)
  Receive Date: 20050826
  Receipt Date: 20050714
  Transmission Date: 20060218
  Serious: No
  Sender: FDA-Public Use
  Company Number: WAES 0311USA00508

PATIENT
  Age: 80 Year
  Sex: Male
  Weight: 85.2762 kg

DRUGS (10)
  1. ZETIA [Suspect]
     Indication: BLOOD CHOLESTEROL INCREASED
     Dosage: 10 MG/DAILY/PO
     Route: 048
     Dates: start: 20030808, end: 20031013
  2. AMBIEN [Concomitant]
  3. COUMADIN [Concomitant]
  4. DARVOCET-N 100 [Concomitant]
  5. FOSAMAX [Concomitant]
  6. KLOR-CON [Concomitant]
  7. LASIX [Concomitant]
  8. LODINE XL [Concomitant]
  9. TRICOR [Concomitant]
  10. [THERAPY UNSPECIFIED] [Concomitant]

REACTIONS (2)
  - BLOOD TRIGLYCERIDES INCREASED [None]
  - HIGH DENSITY LIPOPROTEIN DECREASED [None]
